FAERS Safety Report 6972064-2 (Version None)
Quarter: 2010Q3

REPORT INFORMATION
  Report Type: 
  Country: None (occurrence: None)
  Receive Date: 20100909
  Receipt Date: 20100830
  Transmission Date: 20110219
  Serious: Yes (Hospitalization)
  Sender: FDA-Public Use
  Company Number: US-BIOGENIDEC-2010BI029974

PATIENT
  Age: 74 Year
  Sex: Female
  Weight: 40 kg

DRUGS (3)
  1. AVONEX [Suspect]
     Indication: MULTIPLE SCLEROSIS
     Route: 030
     Dates: start: 20090403
  2. LISINOPRIL [Concomitant]
     Indication: POSTOPERATIVE CARE
     Dates: start: 20100701
  3. PLAVIX [Concomitant]
     Indication: POSTOPERATIVE CARE
     Dates: start: 20100701

REACTIONS (5)
  - EYE INFECTION [None]
  - EYE PAIN [None]
  - GAIT DISTURBANCE [None]
  - INCONTINENCE [None]
  - PROCEDURAL PAIN [None]
